FAERS Safety Report 23702390 (Version 2)
Quarter: 2024Q2

REPORT INFORMATION
  Report Type: Report from Study
  Country: US (occurrence: US)
  Receive Date: 20240403
  Receipt Date: 20240522
  Transmission Date: 20240716
  Serious: Yes (Hospitalization, Other)
  Sender: FDA-Public Use
  Company Number: US-ARGENX-2024-ARGX-US002157

PATIENT

DRUGS (2)
  1. VYVGART [Suspect]
     Active Substance: EFGARTIGIMOD ALFA-FCAB
     Indication: Myasthenia gravis
     Dosage: UNK
     Route: 042
     Dates: start: 20230215
  2. MORPHINE [Suspect]
     Active Substance: MORPHINE
     Indication: Chest pain
     Dosage: UNK
     Route: 065
     Dates: start: 202403

REACTIONS (6)
  - Pleurisy [Unknown]
  - Mycobacterium avium complex infection [Unknown]
  - Nausea [Unknown]
  - Neck pain [Unknown]
  - Papilloma viral infection [Unknown]
  - Vomiting [Unknown]

NARRATIVE: CASE EVENT DATE: 20231201
